FAERS Safety Report 6842353-0 (Version None)
Quarter: 2010Q3

REPORT INFORMATION
  Report Type: 
  Country: None (occurrence: None)
  Receive Date: 20100709
  Receipt Date: 20100702
  Transmission Date: 20110219
  Serious: Yes (Other)
  Sender: FDA-Public Use
  Company Number: 014873

PATIENT
  Sex: 0

DRUGS (1)
  1. KEPPRA [Suspect]
     Dates: start: 20100501

REACTIONS (1)
  - BONE MARROW FAILURE [None]
